FAERS Safety Report 23230321 (Version 2)
Quarter: 2023Q4

REPORT INFORMATION
  Report Type: Other
  Country: TR (occurrence: None)
  Receive Date: 20231127
  Receipt Date: 20231201
  Transmission Date: 20240110
  Serious: Yes (Other)
  Sender: FDA-Public Use
  Company Number: TR-ROCHE-3462326

PATIENT

DRUGS (2)
  1. ATEZOLIZUMAB [Suspect]
     Active Substance: ATEZOLIZUMAB
     Indication: Hepatocellular carcinoma
     Route: 042
  2. BEVACIZUMAB [Suspect]
     Active Substance: BEVACIZUMAB
     Indication: Hepatocellular carcinoma
     Route: 042

REACTIONS (11)
  - Oesophageal varices haemorrhage [Unknown]
  - Proteinuria [Unknown]
  - Hypophysitis [Unknown]
  - Diarrhoea [Unknown]
  - Hypertension [Unknown]
  - Pruritus [Unknown]
  - Rash [Unknown]
  - Platelet count decreased [Unknown]
  - Aspartate aminotransferase increased [Unknown]
  - Immune-mediated thyroiditis [Unknown]
  - Fatigue [Unknown]
